FAERS Safety Report 6841477-1 (Version None)
Quarter: 2010Q3

REPORT INFORMATION
  Report Type: 
  Country: None (occurrence: None)
  Receive Date: 20100714
  Receipt Date: 20070706
  Transmission Date: 20110219
  Serious: No
  Sender: FDA-Public Use
  Company Number: US-PFIZER INC-2007057507

PATIENT
  Sex: Female
  Weight: 59.09 kg

DRUGS (5)
  1. CHANTIX [Suspect]
     Indication: SMOKING CESSATION THERAPY
     Dates: start: 20070527
  2. NICORETTE [Suspect]
     Indication: SMOKING CESSATION THERAPY
     Dates: start: 20070601, end: 20070701
  3. SYNTHROID [Concomitant]
  4. ACETYLSALICYLIC ACID [Concomitant]
  5. ZETIA [Concomitant]
     Indication: BLOOD CHOLESTEROL INCREASED
     Dates: start: 20070601

REACTIONS (2)
  - ANXIETY [None]
  - DYSPNOEA [None]
